FAERS Safety Report 5889904-0 (Version None)
Quarter: 2008Q3

REPORT INFORMATION
  Report Type: 
  Country: None (occurrence: None)
  Receive Date: 20080919
  Receipt Date: 20080912
  Transmission Date: 20090109
  Serious: Yes (Hospitalization, Other)
  Sender: FDA-Public Use
  Company Number: PHHY2008CH21159

PATIENT
  Age: 18 Year
  Sex: Female

DRUGS (4)
  1. LIORESAL [Suspect]
     Indication: DYSTONIA
     Dosage: 70 MG/DAY
     Dates: start: 20070101
  2. AKINETON [Interacting]
     Indication: DYSTONIA
     Dosage: 14 MG/DAY
     Dates: start: 20070101
  3. LYRICA [Interacting]
     Indication: NEURALGIA
     Dosage: 25 MD/DAY
     Dates: start: 20080421, end: 20080428
  4. ASPIRIN [Concomitant]
     Dosage: 100 MG/DAY
     Dates: start: 20050101

REACTIONS (3)
  - DRUG INTERACTION [None]
  - EPILEPSY [None]
  - STATUS EPILEPTICUS [None]
